FAERS Safety Report 25271076 (Version 1)
Quarter: 2025Q2

REPORT INFORMATION
  Report Type: Spontaneous
  Country: US (occurrence: US)
  Receive Date: 20250506
  Receipt Date: 20250506
  Transmission Date: 20250717
  Serious: No
  Sender: AMGEN
  Company Number: US-AMGEN-USASP2025085674

PATIENT
  Age: 72 Year
  Sex: Female

DRUGS (11)
  1. REPATHA [Suspect]
     Active Substance: EVOLOCUMAB
     Indication: Blood cholesterol increased
     Dosage: 140 MILLIGRAM, Q2WK (TWICE A MONTH)
     Route: 065
     Dates: start: 20250429
  2. XANAX [Concomitant]
     Active Substance: ALPRAZOLAM
  3. DIAZEPAM\ISOPROPAMIDE IODIDE [Concomitant]
     Active Substance: DIAZEPAM\ISOPROPAMIDE IODIDE
  4. RECLAST [Concomitant]
     Active Substance: ZOLEDRONIC ACID
  5. MELATONIN [Concomitant]
     Active Substance: MELATONIN
  6. VITAMIN D [Concomitant]
     Active Substance: VITAMIN D NOS
     Dosage: ONE THOUSAND INTERNATIONAL UNIT ONE TABLET, QD
  7. HOMEOPATHICS [Concomitant]
     Active Substance: HOMEOPATHICS
  8. Vicetin [Concomitant]
     Dosage: 100 MILLIGRAM, QD
  9. BIOTIN [Concomitant]
     Active Substance: BIOTIN
     Dosage: 600 MILLIGRAM, QD
  10. HERBALS\TURMERIC [Concomitant]
     Active Substance: HERBALS\TURMERIC
     Dosage: 500 MILLIGRAM, QD
  11. COENZYME Q10 [Concomitant]
     Active Substance: DIETARY SUPPLEMENT\UBIDECARENONE
     Dosage: FOUR HUNDRED, QD

REACTIONS (2)
  - Device difficult to use [Unknown]
  - Fear of injection [Unknown]

NARRATIVE: CASE EVENT DATE: 20250429
